FAERS Safety Report 6569790-6 (Version None)
Quarter: 2010Q1

REPORT INFORMATION
  Report Type: 
  Country: None (occurrence: None)
  Receive Date: 20100202
  Receipt Date: 20100202
  Transmission Date: 20100710
  Serious: Yes (Death)
  Sender: FDA-Public Use
  Company Number: None

PATIENT
  Sex: Male
  Weight: 70 kg

DRUGS (1)
  1. RITUXIMAB [Suspect]
     Indication: LYMPHOMA
     Dosage: 700 MG Q WEEK X 4, THEN IV Q 3MO
     Route: 042
     Dates: start: 20080521, end: 20090910

REACTIONS (2)
  - DEMENTIA [None]
  - ENCEPHALITIS VIRAL [None]
